FAERS Safety Report 23525819 (Version 4)
Quarter: 2024Q2

REPORT INFORMATION
  Report Type: Spontaneous
  Country: US (occurrence: US)
  Receive Date: 20240215
  Receipt Date: 20240529
  Transmission Date: 20240716
  Serious: No
  Sender: FDA-Public Use
  Company Number: US-SA-SAC20240209000817

PATIENT
  Age: 58 Year
  Sex: Female

DRUGS (3)
  1. DUPIXENT [Suspect]
     Active Substance: DUPILUMAB
     Indication: Psoriasis
     Dosage: 300 MG, QOW
     Route: 065
     Dates: start: 202401
  2. DUPIXENT [Suspect]
     Active Substance: DUPILUMAB
     Indication: Dermatitis atopic
  3. CLARITIN [Concomitant]
     Active Substance: LORATADINE
     Dosage: UNK

REACTIONS (8)
  - Joint swelling [Not Recovered/Not Resolved]
  - Muscle fatigue [Unknown]
  - Weight increased [Unknown]
  - Ocular hyperaemia [Not Recovered/Not Resolved]
  - Vision blurred [Unknown]
  - Myalgia [Unknown]
  - Arthralgia [Not Recovered/Not Resolved]
  - Product use in unapproved indication [Unknown]

NARRATIVE: CASE EVENT DATE: 20240101
